FAERS Safety Report 7160503-6 (Version None)
Quarter: 2010Q4

REPORT INFORMATION
  Report Type: 
  Country: None (occurrence: None)
  Receive Date: 20101214
  Receipt Date: 20100104
  Transmission Date: 20110411
  Serious: No
  Sender: FDA-Public Use
  Company Number: US-AMGEN-TCS376504

PATIENT

DRUGS (6)
  1. ENBREL [Suspect]
     Indication: PSORIASIS
     Dosage: 50 MG, 2 TIMES/WK
     Route: 058
     Dates: start: 20091110
  2. SIMVASTATIN [Concomitant]
  3. LISINOPRIL [Concomitant]
  4. TRIAMCINOLONE [Concomitant]
     Dosage: UNK UNK, UNK
  5. CALCIPOTRIENE [Concomitant]
     Dosage: UNK UNK, UNK
  6. FLUOCINONIDE [Concomitant]
     Dosage: UNK UNK, UNK

REACTIONS (1)
  - UPPER RESPIRATORY TRACT INFECTION [None]
